FAERS Safety Report 24327838 (Version 3)
Quarter: 2024Q4

REPORT INFORMATION
  Report Type: Spontaneous
  Country: US (occurrence: US)
  Receive Date: 20240917
  Receipt Date: 20241018
  Transmission Date: 20250115
  Serious: No
  Sender: INCYTE
  Company Number: US-INCYTE CORPORATION-2024IN009458

PATIENT

DRUGS (1)
  1. JAKAFI [Suspect]
     Active Substance: RUXOLITINIB
     Indication: Polycythaemia vera
     Dosage: 10 MILLIGRAM, BID
     Route: 048
     Dates: start: 202408

REACTIONS (5)
  - Fatigue [Unknown]
  - Pain [Unknown]
  - Epistaxis [Unknown]
  - Migraine [Unknown]
  - Head discomfort [Unknown]
